FAERS Safety Report 7202459-3 (Version None)
Quarter: 2010Q4

REPORT INFORMATION
  Report Type: 
  Country: None (occurrence: None)
  Receive Date: 20101229
  Receipt Date: 20101220
  Transmission Date: 20110411
  Serious: Yes (Other)
  Sender: FDA-Public Use
  Company Number: B0687339A

PATIENT
  Age: 70 Year
  Sex: Female

DRUGS (1)
  1. DILATREND [Suspect]
     Indication: HYPERTENSION
     Dosage: 50MG TWICE PER DAY
     Route: 048

REACTIONS (3)
  - OEDEMA PERIPHERAL [None]
  - OVERDOSE [None]
  - RESPIRATORY DISTRESS [None]
